FAERS Safety Report 5869861-3 (Version None)
Quarter: 2008Q3

REPORT INFORMATION
  Report Type: 
  Country: None (occurrence: None)
  Receive Date: 20080902
  Receipt Date: 20080820
  Transmission Date: 20090109
  Serious: Yes (Other)
  Sender: FDA-Public Use
  Company Number: 060022J08USA

PATIENT
  Age: 35 Year
  Sex: Female

DRUGS (1)
  1. SEROPHENE [Suspect]
     Indication: ANOVULATORY CYCLE

REACTIONS (2)
  - MATERNAL DRUGS AFFECTING FOETUS [None]
  - RUPTURED ECTOPIC PREGNANCY [None]
